FAERS Safety Report 5385863-8 (Version None)
Quarter: 2007Q3

REPORT INFORMATION
  Report Type: 
  Country: None (occurrence: None)
  Receive Date: 20070712
  Receipt Date: 20070628
  Transmission Date: 20080115
  Serious: Yes (Hospitalization)
  Sender: FDA-Public Use
  Company Number: IL-ELI_LILLY_AND_COMPANY-IL200706006258

PATIENT
  Age: 70 Year
  Sex: Female
  Weight: 68 kg

DRUGS (4)
  1. CYMBALTA [Suspect]
     Indication: MAJOR DEPRESSION
     Dosage: 30 MG, DAILY (1/D)
     Route: 048
     Dates: start: 20070501
  2. PROSCAR [Concomitant]
     Dosage: 200 MG, UNKNOWN
     Route: 048
  3. XANAX XR [Concomitant]
     Dosage: 0.5 MG, UNKNOWN
     Route: 048
  4. LOPRESSOR [Concomitant]
     Dosage: UNK, UNKNOWN
     Route: 048

REACTIONS (1)
  - BLOOD PRESSURE INCREASED [None]
